FAERS Safety Report 7542450-0 (Version None)
Quarter: 2011Q2

REPORT INFORMATION
  Report Type: 
  Country: None (occurrence: None)
  Receive Date: 20110613
  Receipt Date: 20110505
  Transmission Date: 20111010
  Serious: No
  Sender: FDA-Public Use
  Company Number: A0926196A

PATIENT
  Age: 34 Year
  Sex: Female

DRUGS (1)
  1. NICORETTE (MINT) [Suspect]
     Dates: start: 20110505, end: 20110505

REACTIONS (5)
  - DIZZINESS [None]
  - DRY THROAT [None]
  - THROAT TIGHTNESS [None]
  - DYSPNOEA [None]
  - PALPITATIONS [None]
